FAERS Safety Report 25774688 (Version 1)
Quarter: 2025Q3

REPORT INFORMATION
  Report Type: Spontaneous
  Country: US (occurrence: None)
  Receive Date: 20250905
  Receipt Date: 20250905
  Transmission Date: 20251021
  Serious: Yes (Other)
  Sender: FDA-CTU
  Company Number: None

PATIENT
  Age: 39 Year
  Sex: Female
  Weight: 85.05 kg

DRUGS (3)
  1. MICONAZOLE 7 [Suspect]
     Active Substance: MICONAZOLE NITRATE
     Indication: Fungal infection
     Dosage: OTHER QUANTITY : 1 SUPPOSITORY(IES);?FREQUENCY : AT BEDTIME;?
     Route: 067
     Dates: start: 20250902, end: 20250903
  2. FLUTICASONE [Concomitant]
     Active Substance: FLUTICASONE
  3. AZELASTINE [Concomitant]
     Active Substance: AZELASTINE

REACTIONS (6)
  - Genital burning sensation [None]
  - Pruritus genital [None]
  - Genital pain [None]
  - Genital swelling [None]
  - Gait disturbance [None]
  - Sitting disability [None]

NARRATIVE: CASE EVENT DATE: 20250902
